FAERS Safety Report 7319079-2 (Version None)
Quarter: 2011Q1

REPORT INFORMATION
  Report Type: 
  Country: None (occurrence: None)
  Receive Date: 20110216
  Receipt Date: 20110131
  Transmission Date: 20110831
  Serious: Yes (Other)
  Sender: FDA-Public Use
  Company Number: FK201100103

PATIENT
  Sex: Female

DRUGS (3)
  1. ELOXATIN [Suspect]
  2. FOLINIC ACID (FOLINIC ACID) (FOLINIC ACID) [Suspect]
  3. FLUOROURACIL [Suspect]

REACTIONS (2)
  - NEUROPATHY PERIPHERAL [None]
  - DYSSTASIA [None]
